FAERS Safety Report 5038626-7 (Version None)
Quarter: 2006Q2

REPORT INFORMATION
  Report Type: 
  Country: None (occurrence: None)
  Receive Date: 20060601
  Receipt Date: 20060224
  Transmission Date: 20061013
  Serious: No
  Sender: FDA-Public Use
  Company Number: 2005PV005622

PATIENT
  Age: 57 Year
  Sex: Female
  Weight: 86.1834 kg

DRUGS (5)
  1. BYETTA [Suspect]
     Indication: DIABETES MELLITUS NON-INSULIN-DEPENDENT
     Dosage: SEE IMAGE
     Route: 058
     Dates: start: 20051103, end: 20051201
  2. BYETTA [Suspect]
     Indication: DIABETES MELLITUS NON-INSULIN-DEPENDENT
     Dosage: SEE IMAGE
     Route: 058
     Dates: start: 20051207
  3. ANTIBIOTIC [Suspect]
     Dates: start: 20050101
  4. ANTIBIOTICS [Concomitant]
  5. LEXAPRO [Concomitant]

REACTIONS (4)
  - DIZZINESS [None]
  - FEELING JITTERY [None]
  - MALAISE [None]
  - WEIGHT DECREASED [None]
